FAERS Safety Report 4420956-0 (Version None)
Quarter: 2004Q3

REPORT INFORMATION
  Report Type: 
  Country: None (occurrence: None)
  Receive Date: 20040809
  Receipt Date: 20040121
  Transmission Date: 20050211
  Serious: Yes (Other)
  Sender: FDA-Public Use
  Company Number: US-MERCK-0401USA01594

PATIENT
  Age: 66 Year
  Sex: Female
  Weight: 59 kg

DRUGS (1)
  1. FOSAMAX [Suspect]
     Indication: OSTEOPOROSIS
     Route: 048
     Dates: start: 20030101, end: 20030401

REACTIONS (4)
  - ARTHRALGIA [None]
  - BRONCHITIS [None]
  - COUGH [None]
  - MYALGIA [None]
